FAERS Safety Report 25618154 (Version 2)
Quarter: 2025Q3

REPORT INFORMATION
  Report Type: Report from Study
  Country: US (occurrence: US)
  Receive Date: 20250729
  Receipt Date: 20250806
  Transmission Date: 20251021
  Serious: No
  Sender: SANOFI AVENTIS
  Company Number: US-SA-2025SA219094

PATIENT
  Age: 61 Year
  Sex: Female
  Weight: 113.64 kg

DRUGS (3)
  1. DUPIXENT [Suspect]
     Active Substance: DUPILUMAB
     Indication: Dermatitis atopic
     Dosage: 300 MG, QOW
     Route: 058
  2. HYDROXYZINE HYDROCHLORIDE [Concomitant]
     Active Substance: HYDROXYZINE HYDROCHLORIDE
  3. TACROLIMUS [Concomitant]
     Active Substance: TACROLIMUS

REACTIONS (8)
  - Mouth ulceration [Unknown]
  - Rash pruritic [Unknown]
  - Skin ulcer [Unknown]
  - Skin haemorrhage [Unknown]
  - Pustule [Unknown]
  - Asthma [Unknown]
  - Swelling [Unknown]
  - Pruritus [Unknown]

NARRATIVE: CASE EVENT DATE: 20250601
